FAERS Safety Report 17886597 (Version 2)
Quarter: 2020Q2

REPORT INFORMATION
  Report Type: Report from Study
  Country: PA (occurrence: PA)
  Receive Date: 20200611
  Receipt Date: 20200622
  Transmission Date: 20200714
  Serious: Yes (Other)
  Sender: FDA-Public Use
  Company Number: NVSC2020PA162605

PATIENT
  Age: 53 Year
  Sex: Female

DRUGS (1)
  1. EXFORGE [Suspect]
     Active Substance: AMLODIPINE BESYLATE\VALSARTAN
     Indication: PRODUCT USED FOR UNKNOWN INDICATION
     Dosage: 1 DF (AMLODIPINE 5 MG/ VALSARTAN 160 MG)
     Route: 065
     Dates: start: 2009

REACTIONS (4)
  - Stress [Unknown]
  - Product packaging quantity issue [Unknown]
  - Breast cancer [Unknown]
  - Hypertension [Unknown]
